FAERS Safety Report 9966342 (Version 2)
Quarter: 2014Q1

REPORT INFORMATION
  Report Type: Report from Study
  Country: US (occurrence: US)
  Receive Date: 20140305
  Receipt Date: 20140305
  Transmission Date: 20141002
  Serious: No
  Sender: FDA-Public Use
  Company Number: US-ABBVIE-13P-163-1106026-00

PATIENT
  Age: 47 Year
  Sex: Female

DRUGS (11)
  1. HUMIRA [Suspect]
     Indication: PSORIASIS
     Route: 058
     Dates: start: 20130422
  2. CYCLO [Concomitant]
     Indication: PUPIL DILATION PROCEDURE
  3. AZOPT [Concomitant]
     Indication: SENSATION OF PRESSURE
  4. AZOPT [Concomitant]
     Indication: GLAUCOMA
  5. VALACYCLOVIR [Concomitant]
     Indication: PSORIASIS
     Dosage: 1G DAILY
  6. PREDNISOLONE [Concomitant]
     Indication: PRODUCT USED FOR UNKNOWN INDICATION
     Dosage: RIGHT EYE
  7. LATANOPROST [Concomitant]
     Indication: PRODUCT USED FOR UNKNOWN INDICATION
     Dosage: RIGHT EYE, AT NIGHT
  8. PATADAY [Concomitant]
     Indication: HYPERSENSITIVITY
     Dosage: BOTH EYES, IN THE AM
  9. PROAIR [Concomitant]
     Indication: DYSPNOEA
  10. SPIRIVA [Concomitant]
     Indication: DYSPNOEA
  11. NEBULIZER [Concomitant]
     Indication: PRODUCT USED FOR UNKNOWN INDICATION

REACTIONS (2)
  - Product colour issue [Recovered/Resolved]
  - Injection site pain [Recovered/Resolved]
